FAERS Safety Report 20973244 (Version 1)
Quarter: 2022Q2

REPORT INFORMATION
  Report Type: Spontaneous
  Country: US (occurrence: US)
  Receive Date: 20220617
  Receipt Date: 20220617
  Transmission Date: 20220721
  Serious: Yes (Hospitalization, Other)
  Sender: FDA-Public Use
  Company Number: US-BRISTOL-MYERS SQUIBB COMPANY-2022-053230

PATIENT
  Age: 82 Year
  Sex: Male
  Weight: 84.368 kg

DRUGS (1)
  1. REVLIMID [Suspect]
     Active Substance: LENALIDOMIDE
     Indication: Plasma cell myeloma
     Dosage: QD 14/7
     Route: 048

REACTIONS (2)
  - Cardiac failure congestive [Unknown]
  - Off label use [Unknown]
